FAERS Safety Report 12203204 (Version 1)
Quarter: 2016Q1

REPORT INFORMATION
  Report Type: Spontaneous
  Country: JP (occurrence: JP)
  Receive Date: 20160323
  Receipt Date: 20160323
  Transmission Date: 20160526
  Serious: Yes (Other)
  Sender: FDA-Public Use
  Company Number: JP-ACCORD-038862

PATIENT
  Age: 57 Year
  Sex: Female

DRUGS (1)
  1. CISPLATIN. [Suspect]
     Active Substance: CISPLATIN
     Indication: CERVIX CARCINOMA STAGE II
     Dosage: SECOND CHEMOTHERAPY SESSION

REACTIONS (2)
  - Pruritus [Unknown]
  - Flagellate dermatitis [Recovered/Resolved]
